FAERS Safety Report 5066936-6 (Version None)
Quarter: 2006Q3

REPORT INFORMATION
  Report Type: 
  Country: None (occurrence: None)
  Receive Date: 20060726
  Receipt Date: 20060711
  Transmission Date: 20061208
  Serious: Yes (Hospitalization, Other)
  Sender: FDA-Public Use
  Company Number: 2006AP000519

PATIENT
  Age: 67 Year
  Sex: Male

DRUGS (1)
  1. TICLOPIDINE HCL [Suspect]
     Indication: CORONARY ARTERIAL STENT INSERTION
     Dosage: PO
     Route: 048
     Dates: start: 20060610, end: 20060704

REACTIONS (6)
  - CHILLS [None]
  - CYANOSIS [None]
  - HAIRY CELL LEUKAEMIA [None]
  - PANCYTOPENIA [None]
  - PYREXIA [None]
  - SKIN DISORDER [None]
